FAERS Safety Report 18286189 (Version 1)
Quarter: 2020Q3

REPORT INFORMATION
  Report Type: Report from Study
  Country: US (occurrence: US)
  Receive Date: 20200919
  Receipt Date: 20200919
  Transmission Date: 20201103
  Serious: Yes (Hospitalization)
  Sender: FDA-Public Use
  Company Number: US-TEVA-2020-US-1829898

PATIENT
  Age: 80 Year
  Sex: Female

DRUGS (7)
  1. IRINOTECAN [Suspect]
     Active Substance: IRINOTECAN
     Indication: COLORECTAL CANCER METASTATIC
     Dosage: 148 MILLIGRAM DAILY; 148 MG, Q2WEEKS;
     Route: 042
     Dates: start: 20180509, end: 20180821
  2. FLUOROURACIL. [Suspect]
     Active Substance: FLUOROURACIL
     Indication: COLORECTAL CANCER METASTATIC
     Route: 042
     Dates: start: 20180509, end: 20180509
  3. FLUOROURACIL. [Suspect]
     Active Substance: FLUOROURACIL
     Route: 042
     Dates: start: 20180509, end: 20180821
  4. BEVACIZUMAB. [Suspect]
     Active Substance: BEVACIZUMAB
     Indication: COLORECTAL CANCER METASTATIC
     Dosage: 300 MILLIGRAM DAILY; 300 MG, Q2WEEKS
     Route: 042
     Dates: start: 20180509, end: 20180821
  5. LEUCOVORIN. [Suspect]
     Active Substance: LEUCOVORIN
     Indication: COLORECTAL CANCER METASTATIC
     Dosage: 708 MILLIGRAM DAILY; 708 MG, Q2WEEKS;
     Route: 042
     Dates: start: 20180509, end: 20180509
  6. BBI608 [Suspect]
     Active Substance: NAPABUCASIN
     Indication: COLORECTAL CANCER METASTATIC
     Route: 048
     Dates: start: 20180507
  7. BBI608 [Suspect]
     Active Substance: NAPABUCASIN
     Dosage: 240 MILLICURIES DAILY;
     Route: 048
     Dates: start: 20180902

REACTIONS (2)
  - Hypokalaemia [Unknown]
  - Abdominal pain [Recovered/Resolved]

NARRATIVE: CASE EVENT DATE: 20180902
